FAERS Safety Report 21509656 (Version 1)
Quarter: 2022Q4

REPORT INFORMATION
  Report Type: Report from Study
  Country: US (occurrence: US)
  Receive Date: 20221026
  Receipt Date: 20221026
  Transmission Date: 20230113
  Serious: No
  Sender: FDA-Public Use
  Company Number: US-ABBVIE-4167536

PATIENT
  Sex: Male

DRUGS (1)
  1. IMBRUVICA [Suspect]
     Active Substance: IBRUTINIB
     Indication: Waldenstrom^s macroglobulinaemia
     Route: 048

REACTIONS (7)
  - Contusion [Unknown]
  - Skin laceration [Unknown]
  - Hypertension [Unknown]
  - Erythema [Unknown]
  - Atrial fibrillation [Unknown]
  - Platelet count abnormal [Unknown]
  - Haemorrhagic diathesis [Unknown]
